FAERS Safety Report 9357267 (Version 1)
Quarter: 2013Q2

REPORT INFORMATION
  Report Type: Spontaneous
  Country: US (occurrence: None)
  Receive Date: 20130617
  Receipt Date: 20130617
  Transmission Date: 20140414
  Serious: Yes (Other)
  Sender: FDA-Public Use
  Company Number: AUR-APL-2013-04879

PATIENT
  Age: 65 Year
  Sex: Male
  Weight: 65.76 kg

DRUGS (4)
  1. LISINOPRIL (LISINOPRIL) [Suspect]
     Indication: HYPERTENSION
     Dosage: (10 MG, 1 IN 1 D)
     Dates: start: 2012, end: 201305
  2. CELEBREX (CELECOXIB) [Suspect]
     Dosage: 1 D
  3. SYNTHROID (LEVOTHYROXINE SODIUM) [Concomitant]
  4. PREDNISONE (PREDNISONE) [Concomitant]

REACTIONS (4)
  - Hypertension [None]
  - Drug interaction [None]
  - Asthenia [None]
  - Fatigue [None]
